FAERS Safety Report 25079307 (Version 1)
Quarter: 2025Q1

REPORT INFORMATION
  Report Type: Spontaneous
  Country: CN (occurrence: CN)
  Receive Date: 20250314
  Receipt Date: 20250314
  Transmission Date: 20250409
  Serious: Yes (Hospitalization)
  Sender: BEIGENE
  Company Number: CN-BEIGENE-BGN-2025-003865

PATIENT
  Age: 70 Year
  Weight: 55 kg

DRUGS (8)
  1. TISLELIZUMAB [Suspect]
     Active Substance: TISLELIZUMAB
     Indication: Oesophageal carcinoma
  2. TISLELIZUMAB [Suspect]
     Active Substance: TISLELIZUMAB
     Route: 041
  3. TISLELIZUMAB [Suspect]
     Active Substance: TISLELIZUMAB
     Route: 041
  4. TISLELIZUMAB [Suspect]
     Active Substance: TISLELIZUMAB
  5. CAPECITABINE [Suspect]
     Active Substance: CAPECITABINE
     Indication: Oesophageal carcinoma
     Dosage: 1 GRAM, BID
     Route: 048
  6. CAPECITABINE [Suspect]
     Active Substance: CAPECITABINE
     Dosage: 1 GRAM, BID
  7. NEDAPLATIN [Suspect]
     Active Substance: NEDAPLATIN
     Indication: Oesophageal carcinoma
     Route: 041
  8. NEDAPLATIN [Suspect]
     Active Substance: NEDAPLATIN

REACTIONS (1)
  - Myelosuppression [Recovering/Resolving]
